FAERS Safety Report 6090008-5 (Version None)
Quarter: 2009Q1

REPORT INFORMATION
  Report Type: 
  Country: None (occurrence: None)
  Receive Date: 20090220
  Receipt Date: 20080617
  Transmission Date: 20090719
  Serious: Yes (Other)
  Sender: FDA-Public Use
  Company Number: 2008SP001400

PATIENT
  Sex: Male
  Weight: 72.73 kg

DRUGS (10)
  1. LUNESTA [Suspect]
     Indication: INSOMNIA
     Dosage: 3 MG; HG; ORAL
     Route: 048
  2. SECTRAL [Concomitant]
  3. TAMBOCOR [Concomitant]
  4. PRILOSEC [Concomitant]
  5. ASPIRIN [Concomitant]
  6. HYZAAR [Concomitant]
  7. PLAVIX [Concomitant]
  8. AVODART [Concomitant]
  9. CRESTOR [Concomitant]
  10. PREV MEDS [Concomitant]

REACTIONS (1)
  - NIGHT SWEATS [None]
